FAERS Safety Report 9736015 (Version 5)
Quarter: 2014Q2

REPORT INFORMATION
  Report Type: Report from Study
  Country: US (occurrence: US)
  Receive Date: 20131206
  Receipt Date: 20140630
  Transmission Date: 20141212
  Serious: Yes (Hospitalization, Other)
  Sender: FDA-Public Use
  Company Number: US-BRISTOL-MYERS SQUIBB COMPANY-19865153

PATIENT
  Age: 61 Year
  Sex: Female

DRUGS (17)
  1. DAPAGLIFLOZIN [Suspect]
     Indication: TYPE 2 DIABETES MELLITUS
     Dates: start: 20130809
  2. BLINDED: PLACEBO [Suspect]
     Indication: TYPE 2 DIABETES MELLITUS
     Dates: start: 20130809
  3. GLUCOPHAGE [Suspect]
     Indication: TYPE 2 DIABETES MELLITUS
     Route: 048
  4. COREG [Concomitant]
     Indication: HYPERTENSION
     Route: 048
  5. FISH OIL [Concomitant]
     Indication: PROPHYLAXIS
     Route: 048
  6. MAGNESIUM OXIDE [Concomitant]
     Indication: BLOOD MAGNESIUM DECREASED
     Route: 048
  7. NITROGLYCERIN [Concomitant]
     Indication: CHEST PAIN
     Route: 060
  8. PLAVIX [Concomitant]
     Indication: CORONARY ARTERY DISEASE
     Route: 048
  9. PAXIL [Concomitant]
     Indication: ANXIETY
     Route: 048
  10. IMDUR [Concomitant]
     Indication: ANGINA PECTORIS
     Route: 048
  11. CARDIZEM [Concomitant]
     Indication: HYPERTENSION
     Route: 048
  12. KLOR-CON [Concomitant]
     Indication: BLOOD POTASSIUM DECREASED
     Route: 048
  13. MICARDIS HCT [Concomitant]
     Indication: HYPERTENSION
     Route: 048
  14. ASPIRIN [Concomitant]
     Indication: CORONARY ARTERY DISEASE
     Route: 048
  15. PROTONIX [Concomitant]
     Indication: GASTROOESOPHAGEAL REFLUX DISEASE
     Route: 048
  16. CRESTOR [Concomitant]
     Dosage: 1DF= 10 UNITS NOS
     Route: 048
  17. ZETIA [Concomitant]
     Indication: HYPERCHOLESTEROLAEMIA
     Route: 048

REACTIONS (1)
  - Atrioventricular block second degree [Recovered/Resolved with Sequelae]
